FAERS Safety Report 7578489-9 (Version None)
Quarter: 2011Q2

REPORT INFORMATION
  Report Type: 
  Country: None (occurrence: None)
  Receive Date: 20110628
  Receipt Date: 20110615
  Transmission Date: 20111010
  Serious: Yes (Hospitalization, Other)
  Sender: FDA-Public Use
  Company Number: JP-ELI_LILLY_AND_COMPANY-JP201106003520

PATIENT
  Sex: Male
  Weight: 54.2 kg

DRUGS (23)
  1. GRANISETRON [Concomitant]
     Indication: PROPHYLAXIS
     Dosage: 3 MG, UNK
     Route: 042
     Dates: start: 20110422
  2. MAGLAX                                  /JPN/ [Concomitant]
     Indication: CONSTIPATION
     Dosage: 660 MG, TID
     Route: 048
     Dates: start: 20110527, end: 20110609
  3. GEMCITABINE HYDROCHLORIDE [Suspect]
     Indication: PANCREATIC CARCINOMA
     Dosage: 1570 MG, OTHER
     Route: 042
     Dates: start: 20110422
  4. OXYCONTIN [Concomitant]
     Indication: CANCER PAIN
     Dosage: 30 MG, BID
     Route: 048
     Dates: end: 20110609
  5. OXYCODONE HCL [Concomitant]
     Indication: CANCER PAIN
     Dosage: 2.5 MG, SINGLE
     Route: 048
  6. DOMPERIDONE [Concomitant]
     Indication: DECREASED APPETITE
     Dosage: 10 MG, TID
     Route: 048
     Dates: start: 20110520, end: 20110609
  7. LENDORMIN [Concomitant]
     Indication: INSOMNIA
     Dosage: 0.25 MG, SINGLE
     Route: 048
     Dates: start: 20110520, end: 20110609
  8. SEROTONE [Concomitant]
     Indication: NAUSEA
     Dosage: 10 MG, QD
     Route: 048
     Dates: start: 20110530, end: 20110609
  9. ANPEC [Concomitant]
     Indication: CANCER PAIN
     Dosage: UNK
     Dates: start: 20110609
  10. OTHER PHARMA COMPANY INV DRUG [Suspect]
     Indication: PANCREATIC CARCINOMA
     Dosage: 1 ML, OTHER
     Route: 065
     Dates: start: 20110422
  11. LOXONIN [Concomitant]
     Indication: CANCER PAIN
     Dosage: 60 MG, QD
     Route: 048
     Dates: start: 20110506, end: 20110609
  12. LOXONIN [Concomitant]
     Dosage: 60 MG, QD
     Route: 048
     Dates: start: 20110613
  13. PROMAC                                  /JPN/ [Concomitant]
     Indication: DECREASED APPETITE
     Dosage: 75 MG, BID
     Route: 048
     Dates: start: 20110428, end: 20110609
  14. PARIET                                  /JPN/ [Concomitant]
     Dosage: 10 MG, QD
     Route: 048
     Dates: start: 20110613
  15. GLYCORAN [Concomitant]
     Dosage: 250 MG, TID
     Route: 048
     Dates: start: 20110613
  16. PURSENNID [Concomitant]
     Indication: CONSTIPATION
     Dosage: 24 MG, SINGLE
     Route: 048
     Dates: start: 20110513, end: 20110609
  17. BASEN [Concomitant]
     Indication: DIABETES MELLITUS
     Dosage: 0.2 MG, TID
     Route: 048
     Dates: end: 20110609
  18. BASEN [Concomitant]
     Dosage: 0.2 MG, TID
     Route: 048
     Dates: start: 20110613
  19. FASTIC [Concomitant]
     Dosage: 80 MG, TID
     Route: 048
     Dates: start: 20110615
  20. PARIET                                  /JPN/ [Concomitant]
     Indication: REFLUX OESOPHAGITIS
     Dosage: 10 MG, QD
     Route: 048
     Dates: start: 20110429, end: 20110609
  21. FASTIC [Concomitant]
     Indication: DIABETES MELLITUS
     Dosage: 80 MG, TID
     Route: 048
     Dates: end: 20110609
  22. VOLTAREN                                /SCH/ [Concomitant]
     Indication: CANCER PAIN
     Dosage: UNK
     Dates: start: 20110609
  23. GLYCORAN [Concomitant]
     Indication: DIABETES MELLITUS
     Dosage: 250 MG, TID
     Route: 048
     Dates: start: 20110428, end: 20110609

REACTIONS (2)
  - ILEUS [None]
  - WHITE BLOOD CELL COUNT DECREASED [None]
